FAERS Safety Report 21053370 (Version 4)
Quarter: 2023Q4

REPORT INFORMATION
  Report Type: Spontaneous
  Country: US (occurrence: US)
  Receive Date: 20220707
  Receipt Date: 20231009
  Transmission Date: 20240109
  Serious: Yes (Other)
  Sender: FDA-Public Use
  Company Number: US-TEVA-2022-US-2052421

PATIENT
  Age: 11 Year
  Sex: Female

DRUGS (7)
  1. IFOSFAMIDE [Suspect]
     Active Substance: IFOSFAMIDE
     Indication: Ewing^s sarcoma
     Dosage: 63 G/M2
     Route: 065
  2. ETOPOSIDE [Suspect]
     Active Substance: ETOPOSIDE
     Indication: Ewing^s sarcoma
     Dosage: 1.75 G/M2
     Route: 065
  3. ETOPOSIDE [Suspect]
     Active Substance: ETOPOSIDE
     Dosage: 3.5 G/M2.
     Route: 065
  4. TOPOTECAN [Suspect]
     Active Substance: TOPOTECAN HYDROCHLORIDE
     Indication: Ewing^s sarcoma
     Dosage: 18.75 MG/M2
     Route: 065
  5. VINCRISTINE [Suspect]
     Active Substance: VINCRISTINE
     Indication: Ewing^s sarcoma
     Dosage: 30 MG/M2
     Route: 065
  6. DOXORUBICIN [Suspect]
     Active Substance: DOXORUBICIN
     Indication: Ewing^s sarcoma
     Dosage: 375 MG/M2
     Route: 065
  7. CYCLOPHOSPHAMIDE [Suspect]
     Active Substance: CYCLOPHOSPHAMIDE
     Indication: Ewing^s sarcoma
     Dosage: 12.25 G/M2
     Route: 065

REACTIONS (8)
  - Meningitis cryptococcal [Unknown]
  - Meningitis bacterial [Unknown]
  - Myelosuppression [Unknown]
  - Thrombocytopenia [Unknown]
  - Neutropenia [Unknown]
  - Lymphopenia [Unknown]
  - Sepsis [Unknown]
  - Pneumonia bacterial [Unknown]
